FAERS Safety Report 13999453 (Version 1)
Quarter: 2017Q3

REPORT INFORMATION
  Report Type: Spontaneous
  Country: DK (occurrence: DK)
  Receive Date: 20170922
  Receipt Date: 20170922
  Transmission Date: 20171128
  Serious: Yes (Hospitalization)
  Sender: FDA-Public Use
  Company Number: DK-TEVA-806574ACC

PATIENT
  Age: 73 Year
  Sex: Female
  Weight: 100 kg

DRUGS (3)
  1. METRONIDAZOLE ACTAVIS [Suspect]
     Active Substance: METRONIDAZOLE
     Indication: PERIODONTITIS
     Dosage: 500 MILLIGRAM DAILY;
     Route: 048
     Dates: start: 2014, end: 20170727
  2. HYDROMED [Concomitant]
     Indication: HYPERTENSION
     Route: 048
     Dates: start: 2016
  3. ELTROXIN [Concomitant]
     Active Substance: LEVOTHYROXINE
     Indication: HYPOMETABOLISM
     Route: 048
     Dates: start: 2006

REACTIONS (5)
  - Hypertension [Recovered/Resolved]
  - Rash [Recovered/Resolved]
  - Dyspnoea [Recovered/Resolved]
  - Pruritus [Recovered/Resolved]
  - Palpitations [Recovered/Resolved]

NARRATIVE: CASE EVENT DATE: 20170727
